FAERS Safety Report 6064896-2 (Version None)
Quarter: 2009Q1

REPORT INFORMATION
  Report Type: 
  Country: None (occurrence: None)
  Receive Date: 20090204
  Receipt Date: 20090127
  Transmission Date: 20090719
  Serious: Yes (Life-Threatening, Hospitalization, Other)
  Sender: FDA-Public Use
  Company Number: JP-JNJFOC-20090101151

PATIENT
  Sex: Male

DRUGS (14)
  1. CRAVIT [Suspect]
     Indication: PNEUMONIA
     Route: 048
  2. UNASYN [Suspect]
     Indication: PNEUMONIA
     Route: 042
  3. ISCOTIN [Suspect]
     Indication: TUBERCULOUS PLEURISY
     Dosage: 3 DF, 1 IN 1 DAY
     Route: 048
  4. RIFAMPICIN [Suspect]
     Indication: TUBERCULOUS PLEURISY
     Dosage: 2 DF, 1 IN 1 DAY
     Route: 048
  5. EBUTOL [Suspect]
     Indication: TUBERCULOUS PLEURISY
     Dosage: 2 DF, 1 IN 1 DAY
     Route: 048
  6. URSO 250 [Concomitant]
     Indication: LIVER DISORDER
     Route: 048
  7. MONILAC [Concomitant]
     Indication: LIVER DISORDER
     Route: 048
  8. MEILAX [Concomitant]
     Indication: DEPRESSION
     Route: 048
  9. LUVOX [Concomitant]
     Indication: DEPRESSION
     Route: 048
  10. LASIX [Concomitant]
     Indication: CARDIAC FAILURE CHRONIC
     Route: 048
  11. LAFUTIDINE [Concomitant]
     Indication: GASTROINTESTINAL DISORDER
     Route: 048
  12. GASMOTIN [Concomitant]
     Indication: GASTROINTESTINAL DISORDER
     Route: 048
  13. BIOFERMIN R [Concomitant]
     Indication: GASTROINTESTINAL DISORDER
     Route: 048
  14. MYSLEE [Concomitant]
     Indication: INSOMNIA
     Route: 048

REACTIONS (2)
  - INTERSTITIAL LUNG DISEASE [None]
  - LEUKOPENIA [None]
